FAERS Safety Report 17409982 (Version 1)
Quarter: 2020Q1

REPORT INFORMATION
  Report Type: Spontaneous
  Country: CN (occurrence: CN)
  Receive Date: 20200212
  Receipt Date: 20200212
  Transmission Date: 20200409
  Serious: Yes (Other)
  Sender: FDA-Public Use
  Company Number: CN-PFIZER INC-2020058993

PATIENT
  Age: 32 Year
  Sex: Female
  Weight: 57 kg

DRUGS (4)
  1. METHOTREXATE. [Suspect]
     Active Substance: METHOTREXATE
     Indication: ECTOPIC PREGNANCY
  2. METHOTREXATE. [Suspect]
     Active Substance: METHOTREXATE
     Indication: ABORTION
     Dosage: 50 MG, ONE TIME ALTERNATE DAY
     Route: 030
     Dates: start: 20200106, end: 20200111
  3. SODIUM CHLORIDE. [Concomitant]
     Active Substance: SODIUM CHLORIDE
     Dosage: 5ML ONE TIME ALTERNATE DAY
     Route: 030
     Dates: start: 20200106, end: 20200111
  4. SI MI AN [Concomitant]
     Indication: ABORTION
     Dosage: 50 MG, 2X/DAY
     Route: 048
     Dates: start: 20200106, end: 20200111

REACTIONS (4)
  - Mouth ulceration [Recovered/Resolved]
  - Off label use [Unknown]
  - Product use in unapproved indication [Unknown]
  - Pelvic fluid collection [Recovered/Resolved]

NARRATIVE: CASE EVENT DATE: 20200106
